FAERS Safety Report 15815509 (Version 2)
Quarter: 2019Q1

REPORT INFORMATION
  Report Type: Spontaneous
  Country: RO (occurrence: RO)
  Receive Date: 20190112
  Receipt Date: 20190118
  Transmission Date: 20190417
  Serious: Yes (Life-Threatening, Other)
  Sender: FDA-Public Use
  Company Number: PHHY2019RO005132

PATIENT
  Age: 47 Year
  Sex: Female

DRUGS (3)
  1. TICAGRELOR. [Suspect]
     Active Substance: TICAGRELOR
     Indication: ACUTE CORONARY SYNDROME
     Route: 065
  2. ACETYLSALICYLIC ACID [Suspect]
     Active Substance: ASPIRIN
     Indication: ANTIPLATELET THERAPY
     Route: 065
  3. TICAGRELOR. [Suspect]
     Active Substance: TICAGRELOR
     Indication: ANTIPLATELET THERAPY

REACTIONS (7)
  - Drug ineffective [Unknown]
  - Chest pain [Unknown]
  - Cardiac arrest [Recovered/Resolved]
  - Trifascicular block [Recovered/Resolved]
  - Arteriospasm coronary [Unknown]
  - Paraesthesia [Unknown]
  - Conduction disorder [Unknown]
